FAERS Safety Report 7275725-3 (Version None)
Quarter: 2011Q1

REPORT INFORMATION
  Report Type: 
  Country: None (occurrence: None)
  Receive Date: 20110202
  Receipt Date: 20110202
  Transmission Date: 20110831
  Serious: Yes (Disabling)
  Sender: FDA-Public Use
  Company Number: None

PATIENT
  Age: 68 Year
  Sex: Male

DRUGS (1)
  1. KENALOG-40 [Suspect]
     Indication: MACULAR OEDEMA
     Dosage: 0.05CC 1 TIME OPHTHALMIC
     Route: 047
     Dates: start: 20110114, end: 20110114

REACTIONS (2)
  - VITRITIS [None]
  - HYPOPYON [None]
